FAERS Safety Report 7264705-X (Version None)
Quarter: 2011Q1

REPORT INFORMATION
  Report Type: 
  Country: None (occurrence: None)
  Receive Date: 20110131
  Receipt Date: 20110127
  Transmission Date: 20110831
  Serious: Yes (Other)
  Sender: FDA-Public Use
  Company Number: US-PFIZER INC-2006153969

PATIENT
  Sex: Male
  Weight: 145.13 kg

DRUGS (7)
  1. ROXICODONE [Concomitant]
     Indication: PAIN
  2. XANAX [Concomitant]
     Indication: ANXIETY
  3. ATENOLOL [Concomitant]
  4. CHANTIX [Suspect]
     Indication: SMOKING CESSATION THERAPY
     Dosage: 1MG TWICE DAILY
     Dates: start: 20061201, end: 20061210
  5. CHANTIX [Suspect]
     Dosage: UNK
     Route: 048
     Dates: start: 20100701
  6. ALBUTEROL [Concomitant]
     Indication: PRODUCTIVE COUGH
  7. ALBUTEROL [Concomitant]
     Indication: OCCUPATIONAL EXPOSURE TO TOXIC AGENT
     Route: 055

REACTIONS (8)
  - CARDIAC DISORDER [None]
  - DYSGEUSIA [None]
  - RETCHING [None]
  - COUGH [None]
  - PRODUCTIVE COUGH [None]
  - VENTRICULAR DYSFUNCTION [None]
  - STRESS [None]
  - VOMITING [None]
